FAERS Safety Report 19360000 (Version 1)
Quarter: 2021Q2

REPORT INFORMATION
  Report Type: Spontaneous
  Country: SE (occurrence: SE)
  Receive Date: 20210601
  Receipt Date: 20210601
  Transmission Date: 20210717
  Serious: Yes (Congenital Anomaly, Other)
  Sender: FDA-Public Use
  Company Number: NVSC2021SE117431

PATIENT
  Age: 10 Month

DRUGS (2)
  1. CARBAMAZEPINE. [Suspect]
     Active Substance: CARBAMAZEPINE
     Indication: FOETAL EXPOSURE DURING PREGNANCY
     Dosage: UNK (MOTHER DOSE:UNK, DURING 1ST, 2ND AND 3RD TRIMESTER OF PREGNANCY)
     Route: 064
  2. CLOBAZAM. [Suspect]
     Active Substance: CLOBAZAM
     Indication: FOETAL EXPOSURE DURING PREGNANCY
     Dosage: UNK (MOTHER DOSE: 45 MG, DURING 1ST, 2ND AND 3RD TRIMESTER OF PREGNANCY)
     Route: 064

REACTIONS (2)
  - Foetal exposure during pregnancy [Unknown]
  - Limb reduction defect [Unknown]
